FAERS Safety Report 11995854 (Version 1)
Quarter: 2016Q1

REPORT INFORMATION
  Report Type: Spontaneous
  Country: US (occurrence: US)
  Receive Date: 20160203
  Receipt Date: 20160203
  Transmission Date: 20160526
  Serious: Yes (Other)
  Sender: FDA-Public Use
  Company Number: US-DSJP-DSU-2015-109438AA

PATIENT
  Sex: Female

DRUGS (2)
  1. SALAGEN [Suspect]
     Active Substance: PILOCARPINE HYDROCHLORIDE
     Indication: SJOGREN^S SYNDROME
     Dosage: UNK
  2. EVOXAC [Suspect]
     Active Substance: CEVIMELINE HYDROCHLORIDE
     Indication: SJOGREN^S SYNDROME

REACTIONS (9)
  - Dry mouth [Unknown]
  - Gingivitis [Unknown]
  - Dental caries [Unknown]
  - Choking [Unknown]
  - Arthropathy [Unknown]
  - Pain [Unknown]
  - Oesophageal disorder [Unknown]
  - Tooth loss [Unknown]
  - Nerve injury [Unknown]
